FAERS Safety Report 11428210 (Version 1)
Quarter: 2015Q3

REPORT INFORMATION
  Report Type: Spontaneous
  Country: US (occurrence: US)
  Receive Date: 20150828
  Receipt Date: 20150828
  Transmission Date: 20151125
  Serious: No
  Sender: FDA-Public Use
  Company Number: US-ROCHE-1252430

PATIENT
  Sex: Female

DRUGS (4)
  1. PEGASYS [Suspect]
     Active Substance: PEGINTERFERON ALFA-2A
     Route: 065
     Dates: start: 20130625
  2. PEGASYS [Suspect]
     Active Substance: PEGINTERFERON ALFA-2A
     Indication: CHRONIC HEPATITIS C
     Route: 065
     Dates: start: 20130521, end: 20130625
  3. COPEGUS [Suspect]
     Active Substance: RIBAVIRIN
     Route: 065
  4. COPEGUS [Suspect]
     Active Substance: RIBAVIRIN
     Indication: CHRONIC HEPATITIS C
     Route: 065
     Dates: start: 20130521

REACTIONS (6)
  - Urticaria [Unknown]
  - Rash pruritic [Recovering/Resolving]
  - Headache [Recovered/Resolved]
  - White blood cell count decreased [Recovering/Resolving]
  - Platelet disorder [Unknown]
  - Bowel movement irregularity [Unknown]
